FAERS Safety Report 5960047-0 (Version None)
Quarter: 2008Q4

REPORT INFORMATION
  Report Type: 
  Country: None (occurrence: None)
  Receive Date: 20081112
  Receipt Date: 20080129
  Transmission Date: 20090506
  Serious: Yes (Hospitalization)
  Sender: FDA-Public Use
  Company Number: US-JNJFOC-20080100030

PATIENT
  Age: 41 Year
  Sex: Male

DRUGS (6)
  1. MOTRIN  TAB [Suspect]
     Indication: BACK PAIN
     Dosage: 800 MG 3-4 DAILY
     Dates: start: 19890310, end: 19900501
  2. ERYTHROMYCIN (ERYTHROMYCIN) INJECTION [Concomitant]
  3. ZANTAC 150 [Concomitant]
  4. ANTIBIOTICS (ANTIBIOTICS) [Concomitant]
  5. LISINOPRIL [Concomitant]
  6. EDECRIN (ETACRYNIC ACID) [Concomitant]

REACTIONS (3)
  - PARAESTHESIA [None]
  - RASH [None]
  - RENAL FAILURE [None]
